FAERS Safety Report 9157118 (Version 1)
Quarter: 2013Q1

REPORT INFORMATION
  Report Type: Spontaneous
  Country: DE (occurrence: None)
  Receive Date: 20130308
  Receipt Date: 20130308
  Transmission Date: 20140127
  Serious: Yes (Death, Congenital Anomaly)
  Sender: FDA-Public Use
  Company Number: DSM-2013-00279

PATIENT
  Sex: Male

DRUGS (1)
  1. OLMESARTAN MEDOXOMIL [Suspect]
     Indication: FOETAL EXPOSURE DURING PREGNANCY
     Dosage: PREGNANCY WEEK 0 - PREGNANCY WEEK 32+4 DAYS
     Route: 015

REACTIONS (7)
  - Kidney malformation [None]
  - Maternal drugs affecting foetus [None]
  - Microcephaly [None]
  - Pulmonary hypoplasia [None]
  - Vena cava thrombosis [None]
  - Coagulation disorder neonatal [None]
  - Joint contracture [None]
